FAERS Safety Report 4470139-3 (Version None)
Quarter: 2004Q3

REPORT INFORMATION
  Report Type: 
  Country: None (occurrence: None)
  Receive Date: 20040910
  Receipt Date: 20040726
  Transmission Date: 20050211
  Serious: No
  Sender: FDA-Public Use
  Company Number: 2004226453US

PATIENT
  Sex: Female
  Weight: 73.5 kg

DRUGS (4)
  1. BEXTRA [Suspect]
     Indication: OSTEOARTHRITIS
     Dosage: 10 MG, QD, ORAL
     Route: 048
     Dates: start: 20040721, end: 20040726
  2. FEMARA [Concomitant]
  3. BENICAR [Concomitant]
  4. ANTIDEPRESSANTS [Concomitant]

REACTIONS (5)
  - ABDOMINAL PAIN UPPER [None]
  - DIARRHOEA [None]
  - HEADACHE [None]
  - NAUSEA [None]
  - ORAL PAIN [None]
